FAERS Safety Report 4754688-6 (Version None)
Quarter: 2005Q3

REPORT INFORMATION
  Report Type: 
  Country: None (occurrence: None)
  Receive Date: 20050829
  Receipt Date: 20050316
  Transmission Date: 20060218
  Serious: Yes (Hospitalization)
  Sender: FDA-Public Use
  Company Number: US-MERCK-0503USA03219

PATIENT
  Age: 39 Year
  Sex: Male
  Weight: 100 kg

DRUGS (32)
  1. VIOXX [Suspect]
     Indication: BACK INJURY
     Route: 048
     Dates: start: 20001101, end: 20041015
  2. [THERAPY UNSPECIFIED] [Concomitant]
     Indication: CONSTIPATION
     Route: 065
  3. CEFACLOR [Concomitant]
     Route: 065
  4. CODEINE PHOSPHATE AND GUAIFENESIN [Concomitant]
     Route: 065
  5. PREDNISONE [Concomitant]
     Route: 065
  6. ENDOCET [Concomitant]
     Route: 065
  7. ULTRAM [Concomitant]
     Indication: PAIN
     Route: 065
  8. AMITRIPTYLINE HYDROCHLORIDE [Concomitant]
     Route: 065
  9. PROVENTIL [Concomitant]
     Route: 065
  10. ADVAIR DISKUS 100/50 [Concomitant]
     Route: 065
  11. ALBUTEROL [Concomitant]
     Route: 065
  12. LEVAQUIN [Concomitant]
     Indication: PNEUMONIA
     Route: 065
     Dates: start: 20031101
  13. BACTROBAN [Concomitant]
     Route: 065
  14. NYSTATIN [Concomitant]
     Route: 065
  15. VEETIDS [Concomitant]
     Route: 065
  16. ATACAND [Concomitant]
     Route: 065
  17. GENTAMICIN [Concomitant]
     Route: 065
  18. METHYLPREDNISOLONE [Concomitant]
     Route: 065
  19. ZITHROMAX [Concomitant]
     Indication: PNEUMONIA
     Route: 065
     Dates: start: 20031101
  20. GUAIFENEX [Concomitant]
     Route: 065
  21. MS CONTIN [Concomitant]
     Route: 065
  22. TRAMADOL HYDROCHLORIDE [Concomitant]
     Route: 065
  23. ZOLOFT [Concomitant]
     Route: 065
  24. LIDODERM [Concomitant]
     Route: 065
  25. NASONEX [Concomitant]
     Route: 065
  26. PROMETHAZINE [Concomitant]
     Route: 065
  27. ELOCON [Concomitant]
     Route: 065
  28. CRESTOR [Concomitant]
     Route: 065
  29. BIAXIN [Concomitant]
     Route: 065
  30. HUMIBID [Concomitant]
     Route: 065
  31. LOTRISONE [Concomitant]
     Route: 065
  32. TUSSIONEX [Concomitant]
     Route: 065

REACTIONS (11)
  - ACUTE MYOCARDIAL INFARCTION [None]
  - ANGIOPATHY [None]
  - ASTHMA [None]
  - BLOOD CHOLESTEROL INCREASED [None]
  - CONSTIPATION [None]
  - HEPATIC STEATOSIS [None]
  - HYPERLIPIDAEMIA [None]
  - HYPERTENSION [None]
  - MYOCARDITIS [None]
  - PNEUMONIA [None]
  - SPLENOMEGALY [None]
